FAERS Safety Report 12205556 (Version 1)
Quarter: 2016Q1

REPORT INFORMATION
  Report Type: Spontaneous
  Country: US (occurrence: US)
  Receive Date: 20160323
  Receipt Date: 20160323
  Transmission Date: 20160526
  Serious: No
  Sender: FDA-Public Use
  Company Number: US-BAYER-2016-056845

PATIENT
  Age: 74 Year
  Sex: Male

DRUGS (2)
  1. MIRALAX [Suspect]
     Active Substance: POLYETHYLENE GLYCOL 3350
     Indication: CONSTIPATION
     Dosage: 3 DF, QD
     Route: 048
  2. CITRUCEL [Concomitant]
     Active Substance: METHYLCELLULOSE (4000 MPA.S)

REACTIONS (2)
  - Diarrhoea [None]
  - Product use issue [None]
